FAERS Safety Report 9647963 (Version 4)
Quarter: 2019Q1

REPORT INFORMATION
  Report Type: Spontaneous
  Country: US (occurrence: US)
  Receive Date: 20131028
  Receipt Date: 20190103
  Transmission Date: 20190418
  Serious: No
  Sender: FDA-Public Use
  Company Number: US-PFIZER INC-2013304628

PATIENT
  Age: 63 Year
  Sex: Female

DRUGS (7)
  1. ASPIRIN. [Suspect]
     Active Substance: ASPIRIN
     Dosage: UNK
  2. EFFEXOR [Suspect]
     Active Substance: VENLAFAXINE HYDROCHLORIDE
     Dosage: UNK
  3. EFFEXOR XR [Suspect]
     Active Substance: VENLAFAXINE HYDROCHLORIDE
     Dosage: UNK
  4. PENICILLIN V POTASSIUM. [Suspect]
     Active Substance: PENICILLIN V POTASSIUM
     Dosage: UNK
  5. ZOLOFT [Suspect]
     Active Substance: SERTRALINE HYDROCHLORIDE
     Dosage: UNK
  6. LISINOPRIL. [Suspect]
     Active Substance: LISINOPRIL
     Dosage: UNK
  7. NASONEX [Suspect]
     Active Substance: MOMETASONE FUROATE
     Dosage: UNK

REACTIONS (1)
  - Drug hypersensitivity [Unknown]
